FAERS Safety Report 12923529 (Version 4)
Quarter: 2017Q1

REPORT INFORMATION
  Report Type: Spontaneous
  Country: US (occurrence: US)
  Receive Date: 20161109
  Receipt Date: 20170308
  Transmission Date: 20170428
  Serious: Yes (Other)
  Sender: FDA-Public Use
  Company Number: US-009507513-1611USA001978

PATIENT
  Sex: Female
  Weight: 110.2 kg

DRUGS (2)
  1. NEXPLANON [Suspect]
     Active Substance: ETONOGESTREL
     Dosage: 1 ROD, UNK
     Route: 059
     Dates: start: 20160412, end: 2016
  2. NEXPLANON [Suspect]
     Active Substance: ETONOGESTREL
     Dosage: 1 ROD, UNK
     Route: 059
     Dates: start: 2016

REACTIONS (13)
  - Pregnancy with implant contraceptive [Recovered/Resolved]
  - Skin infection [Unknown]
  - Implant site discharge [Recovered/Resolved]
  - Implant site erythema [Unknown]
  - Wrong technique in product usage process [Unknown]
  - Device deployment issue [Not Recovered/Not Resolved]
  - Road traffic accident [Unknown]
  - Implant site infection [Recovered/Resolved]
  - Complication associated with device [Recovered/Resolved]
  - Impaired healing [Recovered/Resolved]
  - Abortion spontaneous [Unknown]
  - Device expulsion [Recovered/Resolved]
  - Unintended pregnancy [Recovered/Resolved]

NARRATIVE: CASE EVENT DATE: 2016
